FAERS Safety Report 19982518 (Version 3)
Quarter: 2021Q4

REPORT INFORMATION
  Report Type: Spontaneous
  Country: JP (occurrence: JP)
  Receive Date: 20211022
  Receipt Date: 20211222
  Transmission Date: 20220303
  Serious: Yes (Other)
  Sender: FDA-Public Use
  Company Number: JP-NOVARTISPH-NVSJ2021JP011968

PATIENT
  Age: 77 Year
  Sex: Male

DRUGS (2)
  1. BEOVU [Suspect]
     Active Substance: BROLUCIZUMAB-DBLL
     Indication: Age-related macular degeneration
     Dosage: 6 MG
     Route: 031
     Dates: start: 20210622, end: 20210622
  2. BEOVU [Suspect]
     Active Substance: BROLUCIZUMAB-DBLL
     Dosage: 6 MG
     Route: 031
     Dates: start: 20210720, end: 20210720

REACTIONS (7)
  - Retinal vasculitis [Recovered/Resolved]
  - Visual impairment [Unknown]
  - Keratic precipitates [Unknown]
  - Eye inflammation [Recovering/Resolving]
  - Anterior chamber cell [Recovered/Resolved]
  - Vitreous opacities [Recovered/Resolved]
  - Conjunctival hyperaemia [Unknown]

NARRATIVE: CASE EVENT DATE: 20210724
